FAERS Safety Report 26190958 (Version 1)
Quarter: 2025Q4

REPORT INFORMATION
  Report Type: Report from Study
  Country: US (occurrence: US)
  Receive Date: 20251223
  Receipt Date: 20251223
  Transmission Date: 20260117
  Serious: Yes (Other)
  Sender: ALEXION PHARMACEUTICALS
  Company Number: US-ASTRAZENECA-202512NAM015007US

PATIENT
  Sex: Female

DRUGS (1)
  1. OSIMERTINIB [Suspect]
     Active Substance: OSIMERTINIB
     Indication: Lung carcinoma cell type unspecified stage 0
     Dosage: 40 MILLIGRAM, QD
     Route: 061
     Dates: start: 202506

REACTIONS (5)
  - Leukoplakia oral [Unknown]
  - Stomatitis [Unknown]
  - Oral mucosal erythema [Unknown]
  - Oral pain [Unknown]
  - Dysphagia [Unknown]
